FAERS Safety Report 4924715-1 (Version None)
Quarter: 2006Q1

REPORT INFORMATION
  Report Type: 
  Country: None (occurrence: None)
  Receive Date: 20060222
  Receipt Date: 20030324
  Transmission Date: 20060701
  Serious: Yes (Death, Hospitalization, Other)
  Sender: FDA-Public Use
  Company Number: KII-2003-0002191

PATIENT
  Age: 43 Year
  Sex: Male

DRUGS (4)
  1. OXYCODONE HCL [Suspect]
     Indication: PAIN
     Dosage: 5 MG, ORAL
     Route: 048
  2. PERCOCET [Suspect]
     Indication: PAIN
     Dosage: ORAL
     Route: 048
  3. ACETAMINOPHEN [Suspect]
     Indication: PAIN
     Dosage: ORAL
     Route: 048
  4. ALCOHOL (ETHANOL) [Suspect]
     Dosage: DAILY, ORAL
     Route: 048

REACTIONS (21)
  - ALANINE AMINOTRANSFERASE INCREASED [None]
  - AMMONIA INCREASED [None]
  - BLOOD ALKALINE PHOSPHATASE INCREASED [None]
  - BLOOD BICARBONATE DECREASED [None]
  - BLOOD CREATINE INCREASED [None]
  - BLOOD FIBRINOGEN DECREASED [None]
  - BLOOD GLUCOSE DECREASED [None]
  - BLOOD LACTIC ACID INCREASED [None]
  - BLOOD UREA INCREASED [None]
  - BODY TEMPERATURE DECREASED [None]
  - CD4 LYMPHOCYTES DECREASED [None]
  - COAGULATION TEST ABNORMAL [None]
  - COAGULATION TIME PROLONGED [None]
  - COMA [None]
  - CONFUSIONAL STATE [None]
  - HEART RATE INCREASED [None]
  - HYPOTENSION [None]
  - INTERNATIONAL NORMALISED RATIO INCREASED [None]
  - LIVER DISORDER [None]
  - MULTIPLE DRUG OVERDOSE [None]
  - PLATELET COUNT DECREASED [None]
